FAERS Safety Report 7909253 (Version 2)
Quarter: 2012Q4

REPORT INFORMATION
  Report Type: 
  Country: US (occurrence: US)
  Receive Date: 20110421
  Receipt Date: 20120927
  Transmission Date: 20130627
  Serious: No
  Sender: FDA-Public Use
  Company Number: US-ASTRAZENECA-2010SE21885

PATIENT
  Age: 79 Year
  Sex: Female

DRUGS (7)
  1. TOPROL XL [Suspect]
     Route: 048
  2. TOPROL XL [Suspect]
     Route: 048
  3. METOPROLOL [Suspect]
     Route: 065
  4. ACCOLATE [Suspect]
     Route: 048
  5. PULMICORT FLEXHALER [Suspect]
     Route: 055
  6. NEXIUM [Suspect]
     Route: 048
  7. LORTAB 10 [Concomitant]

REACTIONS (9)
  - Blood pressure increased [Unknown]
  - Adverse event [Unknown]
  - Pain [Unknown]
  - Fibromyalgia [Unknown]
  - Blood pressure decreased [Unknown]
  - Amnesia [Unknown]
  - Vertigo [Unknown]
  - Insomnia [Unknown]
  - Asthenia [Unknown]
